FAERS Safety Report 5795407-4 (Version None)
Quarter: 2008Q2

REPORT INFORMATION
  Report Type: 
  Country: None (occurrence: None)
  Receive Date: 20080630
  Receipt Date: 20080619
  Transmission Date: 20081010
  Serious: Yes (Death, Hospitalization)
  Sender: FDA-Public Use
  Company Number: US-PFIZER INC-2007049561

PATIENT
  Sex: Male
  Weight: 79 kg

DRUGS (8)
  1. SUTENT [Suspect]
     Indication: RENAL CELL CARCINOMA
     Route: 048
     Dates: start: 20070503, end: 20070529
  2. IBUROFEN [Concomitant]
     Route: 048
  3. TYLENOL W/ CODEINE [Concomitant]
     Route: 048
  4. ZIAC [Concomitant]
     Dosage: TEXT:2.5/6.25 MG
     Route: 048
  5. LOPERAMIDE HYDROCHLORIDE [Concomitant]
     Route: 048
  6. REGLAN [Concomitant]
     Route: 048
     Dates: start: 20070531
  7. K-DUR [Concomitant]
     Route: 048
     Dates: start: 20070531
  8. NAPROSYN [Concomitant]
     Route: 048
     Dates: start: 20070101

REACTIONS (6)
  - ANAEMIA [None]
  - DISEASE PROGRESSION [None]
  - HICCUPS [None]
  - LOWER GASTROINTESTINAL HAEMORRHAGE [None]
  - RENAL CELL CARCINOMA [None]
  - RETROPERITONEAL ABSCESS [None]
